FAERS Safety Report 18214578 (Version 1)
Quarter: 2020Q3

REPORT INFORMATION
  Report Type: Spontaneous
  Country: US (occurrence: US)
  Receive Date: 20200831
  Receipt Date: 20200831
  Transmission Date: 20201103
  Serious: Yes (Other)
  Sender: FDA-Public Use
  Company Number: NVSC2020US239057

PATIENT

DRUGS (4)
  1. RITUXIMAB. [Suspect]
     Active Substance: RITUXIMAB
     Indication: INTERSTITIAL LUNG DISEASE
     Dosage: 375 MG/M2, QW QW FOR 4 WEEKS (RITUXIMAB INFUSIONS WERE REPEATED AT 6 MONTH INTERVALS, FOR 3 OR 4 COU
     Route: 041
     Dates: start: 20060701, end: 20181201
  2. MYCOPHENOLATE MOFETIL. [Suspect]
     Active Substance: MYCOPHENOLATE MOFETIL
     Indication: IMMUNODEFICIENCY COMMON VARIABLE
  3. RITUXIMAB. [Suspect]
     Active Substance: RITUXIMAB
     Indication: IMMUNODEFICIENCY COMMON VARIABLE
  4. MYCOPHENOLATE MOFETIL. [Suspect]
     Active Substance: MYCOPHENOLATE MOFETIL
     Indication: INTERSTITIAL LUNG DISEASE
     Dosage: 250?1000 MG, QD
     Route: 065
     Dates: start: 20060701, end: 20181201

REACTIONS (3)
  - Immunodeficiency common variable [Unknown]
  - Interstitial lung disease [Unknown]
  - Product use in unapproved indication [Unknown]
